FAERS Safety Report 7337635-2 (Version None)
Quarter: 2011Q1

REPORT INFORMATION
  Report Type: 
  Country: None (occurrence: None)
  Receive Date: 20110308
  Receipt Date: 20110222
  Transmission Date: 20110831
  Serious: Yes (Hospitalization, Other)
  Sender: FDA-Public Use
  Company Number: US-BAYER-201034647NA

PATIENT
  Sex: Female
  Weight: 73 kg

DRUGS (14)
  1. UNCODEABLE ^UNCLASSIFIABLE^ [Concomitant]
     Indication: MULTIPLE ALLERGIES
     Dosage: UNK
     Dates: start: 20000101, end: 20080101
  2. MORPHINE [Concomitant]
     Indication: PRODUCT USED FOR UNKNOWN INDICATION
     Dosage: UNK
     Dates: end: 20080911
  3. IBUPROFEN [Concomitant]
     Dosage: DAILY DOSE 500 MG
     Route: 048
     Dates: start: 20080826
  4. YASMIN [Suspect]
     Indication: OVARIAN CYST
     Dosage: UNK
     Dates: start: 20080501
  5. CLARITIN [Concomitant]
     Indication: MULTIPLE ALLERGIES
     Dosage: UNK
     Dates: start: 20080101, end: 20090101
  6. PROTONIX [Concomitant]
     Indication: PRODUCT USED FOR UNKNOWN INDICATION
  7. PENICILLIN [Concomitant]
     Dosage: UNK
     Dates: start: 20080908
  8. PENICILLIN [Concomitant]
     Dosage: UNK
     Dates: start: 20080826
  9. I.V. SOLUTIONS [Concomitant]
     Indication: PRODUCT USED FOR UNKNOWN INDICATION
     Dosage: UNK
     Route: 042
     Dates: end: 20080911
  10. SILVADENE [Concomitant]
     Indication: PRODUCT USED FOR UNKNOWN INDICATION
  11. YAZ [Suspect]
     Indication: OVARIAN CYST
     Dosage: UNK
     Dates: start: 20080506
  12. ALLEGRA [Concomitant]
     Indication: MULTIPLE ALLERGIES
     Dosage: UNK
     Dates: start: 20080101, end: 20090101
  13. ANTIBIOTICS [Concomitant]
     Indication: PRODUCT USED FOR UNKNOWN INDICATION
     Dosage: UNK UNK, PRN
  14. MOTRIN [Concomitant]

REACTIONS (4)
  - DYSPNOEA [None]
  - CHEST PAIN [None]
  - ABDOMINAL PAIN UPPER [None]
  - PULMONARY EMBOLISM [None]
